FAERS Safety Report 10009845 (Version 1)
Quarter: 2014Q1

REPORT INFORMATION
  Report Type: Spontaneous
  Country: US (occurrence: US)
  Receive Date: 20140312
  Receipt Date: 20140312
  Transmission Date: 20141002
  Serious: Yes (Other)
  Sender: FDA-Public Use
  Company Number: US-INCYTE CORPORATION-2013IN000421

PATIENT
  Sex: 0

DRUGS (1)
  1. JAKAFI [Suspect]
     Indication: MYELOFIBROSIS
     Dosage: 2 PILLS A DAY
     Dates: start: 201202, end: 201302

REACTIONS (2)
  - Platelet count decreased [Unknown]
  - Splenomegaly [Unknown]
